FAERS Safety Report 4992868-5 (Version None)
Quarter: 2006Q2

REPORT INFORMATION
  Report Type: 
  Country: None (occurrence: None)
  Receive Date: 20060504
  Receipt Date: 20060502
  Transmission Date: 20061013
  Serious: Yes (Hospitalization)
  Sender: FDA-Public Use
  Company Number: US-MERCK-0605USA00542

PATIENT
  Age: 68 Year
  Sex: Male

DRUGS (2)
  1. FOSAMAX [Suspect]
     Indication: OSTEOPOROSIS
     Route: 048
     Dates: start: 20050101, end: 20060301
  2. [THERAPY UNSPECIFIED] [Concomitant]
     Indication: PAIN
     Route: 065

REACTIONS (1)
  - RENAL CELL CARCINOMA STAGE UNSPECIFIED [None]
